FAERS Safety Report 11329647 (Version 1)
Quarter: 2015Q3

REPORT INFORMATION
  Report Type: Spontaneous
  Country: US (occurrence: US)
  Receive Date: 20150803
  Receipt Date: 20150803
  Transmission Date: 20151125
  Serious: Yes (Other)
  Sender: FDA-Public Use
  Company Number: US-BAYER-2015-386147

PATIENT
  Sex: Female

DRUGS (1)
  1. MIRENA [Suspect]
     Active Substance: LEVONORGESTREL
     Dosage: 20 MCG/24HR, CONT
     Route: 015
     Dates: start: 20081113, end: 20120929

REACTIONS (11)
  - Frustration [None]
  - Anxiety [None]
  - Device defective [None]
  - Embedded device [None]
  - Shock [None]
  - Pain [None]
  - General physical health deterioration [None]
  - Emotional distress [None]
  - Depressed mood [None]
  - Mental disorder [None]
  - Anger [None]

NARRATIVE: CASE EVENT DATE: 20120929
